FAERS Safety Report 7458928-4 (Version None)
Quarter: 2011Q2

REPORT INFORMATION
  Report Type: 
  Country: None (occurrence: None)
  Receive Date: 20110504
  Receipt Date: 20110504
  Transmission Date: 20111010
  Serious: Yes (Hospitalization)
  Sender: FDA-Public Use
  Company Number: DE-ABBOTT-11P-062-0720370-00

PATIENT
  Sex: Female
  Weight: 52 kg

DRUGS (5)
  1. CIPROFLOXACIN [Concomitant]
     Indication: PRODUCT USED FOR UNKNOWN INDICATION
     Dates: start: 20110418
  2. METRONIDAZOLE [Concomitant]
     Indication: INFECTION
     Dates: start: 20110418
  3. HUMIRA [Suspect]
     Indication: CROHN'S DISEASE
     Route: 058
     Dates: start: 20110209, end: 20110401
  4. DEXAMETHASONE [Concomitant]
     Indication: EPISCLERITIS
     Dosage: ON DEMAND
  5. HUMIRA [Suspect]
     Route: 058
     Dates: start: 20110401

REACTIONS (2)
  - CROHN'S DISEASE [None]
  - NIGHT SWEATS [None]
